FAERS Safety Report 25171633 (Version 1)
Quarter: 2025Q2

REPORT INFORMATION
  Report Type: Spontaneous
  Country: CN (occurrence: CN)
  Receive Date: 20250408
  Receipt Date: 20250408
  Transmission Date: 20250717
  Serious: Yes (Other)
  Sender: ELI LILLY AND CO
  Company Number: CN-Merck Healthcare KGaA-2025015445

PATIENT
  Age: 60 Year
  Sex: Male
  Weight: 41 kg

DRUGS (7)
  1. ERBITUX [Suspect]
     Active Substance: CETUXIMAB
     Indication: Squamous cell carcinoma of the oral cavity
     Route: 042
     Dates: start: 20250303, end: 20250303
  2. TORIPALIMAB [Suspect]
     Active Substance: TORIPALIMAB
     Indication: Squamous cell carcinoma of the oral cavity
     Dosage: 240 MG, DAILY
     Route: 041
     Dates: start: 20250303, end: 20250303
  3. CISPLATIN [Suspect]
     Active Substance: CISPLATIN
     Indication: Squamous cell carcinoma of the oral cavity
     Dosage: 40 MG, DAILY
     Route: 041
     Dates: start: 20250303, end: 20250303
  4. PACLITAXEL [Suspect]
     Active Substance: PACLITAXEL
     Indication: Squamous cell carcinoma of the oral cavity
     Dosage: 180 MG, DAILY
     Route: 041
     Dates: start: 20250303, end: 20250303
  5. SODIUM CHLORIDE [Concomitant]
     Active Substance: SODIUM CHLORIDE
     Indication: Medication dilution
     Dosage: 100 ML, DAILY
     Route: 041
     Dates: start: 20250303, end: 20250303
  6. SODIUM CHLORIDE [Concomitant]
     Active Substance: SODIUM CHLORIDE
     Dosage: 500 ML, DAILY
     Route: 041
     Dates: start: 20250303, end: 20250303
  7. SODIUM CHLORIDE [Concomitant]
     Active Substance: SODIUM CHLORIDE
     Dosage: 80 ML, DAILY
     Route: 041
     Dates: start: 20250303, end: 20250303

REACTIONS (1)
  - Dermatitis allergic [Unknown]

NARRATIVE: CASE EVENT DATE: 20250312
